FAERS Safety Report 5346575-X (Version None)
Quarter: 2007Q2

REPORT INFORMATION
  Report Type: 
  Country: None (occurrence: None)
  Receive Date: 20070430
  Receipt Date: 20070306
  Transmission Date: 20071010
  Serious: No
  Sender: FDA-Public Use
  Company Number: 261457

PATIENT

DRUGS (2)
  1. LEVEMIR [Suspect]
     Indication: DIABETES MELLITUS
     Dosage: 60 IU, TID, SUBCUTANEOUS
     Route: 058
  2. APIDRA [Concomitant]

REACTIONS (1)
  - WEIGHT INCREASED [None]
